FAERS Safety Report 16961446 (Version 1)
Quarter: 2019Q4

REPORT INFORMATION
  Report Type: Report from Study
  Country: CO (occurrence: CO)
  Receive Date: 20191025
  Receipt Date: 20191025
  Transmission Date: 20200122
  Serious: Yes (Other)
  Sender: FDA-Public Use
  Company Number: CO-ACTELION-A-CH2019-197407

PATIENT
  Sex: Female
  Weight: 38 kg

DRUGS (4)
  1. OPSUMIT [Suspect]
     Active Substance: MACITENTAN
     Indication: PULMONARY ARTERIAL HYPERTENSION
     Dosage: 10 MG, QD
     Route: 048
     Dates: start: 20160101, end: 20180921
  2. OPSUMIT [Suspect]
     Active Substance: MACITENTAN
     Dosage: 10 MG, QD
     Route: 048
     Dates: start: 20181121, end: 201905
  3. OXYGEN. [Concomitant]
     Active Substance: OXYGEN
  4. OPSUMIT [Suspect]
     Active Substance: MACITENTAN
     Dosage: 10 MG, QD
     Route: 048
     Dates: start: 20190617

REACTIONS (9)
  - Agitation [Unknown]
  - Drug ineffective [Unknown]
  - Bone pain [Unknown]
  - Decreased appetite [Unknown]
  - Walking aid user [Unknown]
  - Osteoarthritis [Unknown]
  - Osteoporosis [Unknown]
  - Fatigue [Unknown]
  - Insomnia [Unknown]
